FAERS Safety Report 15347388 (Version 2)
Quarter: 2019Q2

REPORT INFORMATION
  Report Type: Spontaneous
  Country: US (occurrence: US)
  Receive Date: 20180904
  Receipt Date: 20190425
  Transmission Date: 20190711
  Serious: No
  Sender: FDA-Public Use
  Company Number: US-SA-2018SA247035

PATIENT
  Sex: Female

DRUGS (14)
  1. AUBAGIO [Suspect]
     Active Substance: TERIFLUNOMIDE
     Indication: PRODUCT USED FOR UNKNOWN INDICATION
     Dosage: 1 DF, QD
     Route: 048
  2. BIOTIN [Concomitant]
     Active Substance: BIOTIN
     Dosage: UNK, UNK
     Route: 065
  3. ALENDRONATE [Concomitant]
     Active Substance: ALENDRONATE SODIUM
  4. ELETRIPTAN. [Concomitant]
     Active Substance: ELETRIPTAN
     Dosage: UNK, UNK
     Route: 065
  5. KEPPRA [Concomitant]
     Active Substance: LEVETIRACETAM
     Dosage: UNK, UNK
  6. LEVOTHYROXIN [Concomitant]
     Active Substance: LEVOTHYROXINE
  7. MYRBETRIQ [Concomitant]
     Active Substance: MIRABEGRON
  8. MONTELUKAST [Concomitant]
     Active Substance: MONTELUKAST SODIUM
  9. DIVALPROEX [Concomitant]
     Active Substance: DIVALPROEX SODIUM
     Dosage: UNK, UNK
  10. BACLOFEN. [Concomitant]
     Active Substance: BACLOFEN
  11. LINZESS [Concomitant]
     Active Substance: LINACLOTIDE
     Dosage: UNK UNK, UNK
  12. CRESTOR [Concomitant]
     Active Substance: ROSUVASTATIN CALCIUM
  13. HYDROCODONE [Concomitant]
     Active Substance: HYDROCODONE
     Dosage: UNK, UNK
  14. LINESSA 21 [Concomitant]
     Active Substance: DESOGESTREL\ETHINYL ESTRADIOL

REACTIONS (3)
  - Vision blurred [Not Recovered/Not Resolved]
  - Product dose omission [Unknown]
  - Dry eye [Not Recovered/Not Resolved]

NARRATIVE: CASE EVENT DATE: 201807
